FAERS Safety Report 8352324-3 (Version None)
Quarter: 2012Q2

REPORT INFORMATION
  Report Type: 
  Country: None (occurrence: None)
  Receive Date: 20120511
  Receipt Date: 20120503
  Transmission Date: 20120825
  Serious: Yes (Hospitalization)
  Sender: FDA-Public Use
  Company Number: US-BAYER-2012-044658

PATIENT
  Age: 46 Year
  Sex: Female
  Weight: 58 kg

DRUGS (19)
  1. KETAMINE [Concomitant]
     Dosage: 50 MG, UNK
     Route: 042
     Dates: start: 20090625
  2. FENTANYL CITRATE [Concomitant]
     Dosage: UNK
     Route: 042
     Dates: start: 20090625
  3. DILAUDID [Concomitant]
     Dosage: 2 MG, UNK
     Route: 042
     Dates: start: 20090625
  4. PROPOFOL [Concomitant]
     Dosage: 10 MG, UNK
     Route: 042
     Dates: start: 20090625
  5. CLEOCIN HYDROCHLORIDE [Concomitant]
     Dosage: 600 MG, UNK
     Route: 042
     Dates: start: 20090625
  6. DROSPIRENONE AND ETHINYL ESTRADIOL [Suspect]
     Indication: CONTRACEPTION
     Dosage: UNK
     Dates: start: 20080701, end: 20090503
  7. PENTOTHAL [Concomitant]
     Dosage: 250 MG, UNK
     Route: 042
     Dates: start: 20090625
  8. YASMIN [Suspect]
     Dosage: UNK
     Dates: start: 20090601
  9. MOTRIN [Concomitant]
  10. SCOPOLAMINE [Concomitant]
     Dosage: 1.5 MG, UNK
     Route: 061
     Dates: start: 20090625
  11. LEVOXYL [Concomitant]
     Indication: HYPOTHYROIDISM
     Dosage: 25 ?G, 1 PILL, QD
     Dates: start: 19900101
  12. TORADOL [Concomitant]
     Dosage: 30 MG, UNK
     Route: 042
     Dates: start: 20090625
  13. YASMIN [Suspect]
     Indication: CONTRACEPTION
     Dosage: UNK
     Dates: start: 20011218, end: 20080615
  14. EPHEDRINE [Concomitant]
     Dosage: 50 MG, UNK
     Route: 042
     Dates: start: 20090625
  15. ZEMURON [Concomitant]
     Dosage: 100 MG, UNK
     Route: 042
     Dates: start: 20090625
  16. ROBINUL [Concomitant]
     Dosage: 0.4 MG, UNK
     Route: 042
     Dates: start: 20090625
  17. VERSED [Concomitant]
     Dosage: 2 MG, UNK
     Route: 042
     Dates: start: 20090625
  18. NORETHINDRONE ACETATE [Concomitant]
     Dosage: 5 MG, UNK
  19. FIORICET [Concomitant]

REACTIONS (3)
  - PLEURITIC PAIN [None]
  - DYSPNOEA [None]
  - PULMONARY EMBOLISM [None]
